FAERS Safety Report 6068063-8 (Version None)
Quarter: 2009Q1

REPORT INFORMATION
  Report Type: 
  Country: None (occurrence: None)
  Receive Date: 20090206
  Receipt Date: 20090130
  Transmission Date: 20090719
  Serious: Yes (Hospitalization)
  Sender: FDA-Public Use
  Company Number: FR-AMGEN-US312818

PATIENT
  Sex: Female

DRUGS (4)
  1. ENBREL [Suspect]
     Indication: PSORIATIC ARTHROPATHY
     Route: 058
     Dates: start: 20050901, end: 20080701
  2. METHOTREXATE [Suspect]
     Indication: PSORIATIC ARTHROPATHY
     Dosage: 15 MG
     Route: 048
     Dates: start: 20040301
  3. CEBUTID [Concomitant]
     Indication: PSORIATIC ARTHROPATHY
     Dosage: 200 MG
     Route: 048
     Dates: start: 20040101
  4. IXPRIM [Concomitant]
     Dosage: UNKNOWN
     Route: 065

REACTIONS (2)
  - DRUG TOXICITY [None]
  - LEUKOENCEPHALOPATHY [None]
